FAERS Safety Report 11541916 (Version 4)
Quarter: 2016Q2

REPORT INFORMATION
  Report Type: Report from Study
  Country: AT (occurrence: AT)
  Receive Date: 20150923
  Receipt Date: 20160628
  Transmission Date: 20160815
  Serious: Yes (Death, Other)
  Sender: FDA-Public Use
  Company Number: AT-INCYTE CORPORATION-2015IN004602

PATIENT
  Age: 69 Year
  Sex: Male

DRUGS (3)
  1. JAKAFI [Suspect]
     Active Substance: RUXOLITINIB
     Indication: MYELOFIBROSIS
     Dosage: 20 MG, QD
     Route: 048
     Dates: start: 20111018, end: 20140609
  2. JAKAFI [Suspect]
     Active Substance: RUXOLITINIB
     Dosage: 15 MG, UNK
     Route: 065
     Dates: start: 20140610, end: 20141019
  3. JAKAFI [Suspect]
     Active Substance: RUXOLITINIB
     Dosage: 20 MG, UNK
     Route: 065
     Dates: start: 20141020

REACTIONS (28)
  - Basophil count increased [Unknown]
  - Aspartate aminotransferase increased [Unknown]
  - Haematocrit decreased [Unknown]
  - Death [Fatal]
  - Red cell distribution width increased [Unknown]
  - Reticulocyte count decreased [Unknown]
  - Myelocyte count increased [Unknown]
  - White blood cell count increased [Unknown]
  - Lymphocyte count decreased [Unknown]
  - Cough [Not Recovered/Not Resolved]
  - Staphylococcal sepsis [Not Recovered/Not Resolved]
  - Blood bilirubin increased [Unknown]
  - Mean cell haemoglobin decreased [Unknown]
  - Blood bilirubin unconjugated increased [Unknown]
  - Blood lactate dehydrogenase increased [Unknown]
  - Platelet count increased [Unknown]
  - Metamyelocyte count increased [Unknown]
  - Blood uric acid increased [Not Recovered/Not Resolved]
  - Protein total decreased [Unknown]
  - Mean cell volume decreased [Unknown]
  - Reticulocyte count increased [Unknown]
  - Haemoglobin decreased [Unknown]
  - Neuropathy peripheral [Not Recovered/Not Resolved]
  - Bilirubin conjugated increased [Unknown]
  - Blood cholinesterase decreased [Unknown]
  - Blood alkaline phosphatase increased [Unknown]
  - Gamma-glutamyltransferase increased [Unknown]
  - Blast cell count increased [Unknown]

NARRATIVE: CASE EVENT DATE: 20111018
